FAERS Safety Report 5922559-5 (Version None)
Quarter: 2008Q4

REPORT INFORMATION
  Report Type: 
  Country: None (occurrence: None)
  Receive Date: 20081017
  Receipt Date: 20081009
  Transmission Date: 20090506
  Serious: Yes (Other)
  Sender: FDA-Public Use
  Company Number: PHEH2008US09098

PATIENT

DRUGS (4)
  1. TEKTURNA [Suspect]
     Dosage: 300 MG, IN PM
  2. DICLOFENAC SODIUM [Suspect]
     Dosage: UNK
  3. MICARDIS HCT [Suspect]
     Dosage: UNK, IN AM
  4. PRAVASTATIN SODIUM [Suspect]
     Indication: BLOOD CHOLESTEROL
     Dosage: 10 MG, TAA X1 A DAY
     Route: 048

REACTIONS (2)
  - ARRHYTHMIA [None]
  - FEELING ABNORMAL [None]
